FAERS Safety Report 19960520 (Version 2)
Quarter: 2021Q4

REPORT INFORMATION
  Report Type: Spontaneous
  Country: DE (occurrence: DE)
  Receive Date: 20211015
  Receipt Date: 20211020
  Transmission Date: 20220303
  Serious: Yes (Death, Hospitalization, Other)
  Sender: FDA-Public Use
  Company Number: DE-GILEAD-2021-0552612

PATIENT
  Age: 67 Year
  Sex: Male
  Weight: 85 kg

DRUGS (11)
  1. TECARTUS [Suspect]
     Active Substance: BREXUCABTAGENE AUTOLEUCEL
     Indication: McLeod neuroacanthocytosis syndrome
     Dosage: DOSING 0,4-2X10*8
     Route: 042
     Dates: start: 20211006, end: 20211006
  2. ALLOPURINOL [Concomitant]
     Active Substance: ALLOPURINOL
  3. IMBRUVICA [Concomitant]
     Active Substance: IBRUTINIB
  4. METOPROLOLSUCCINAT STADA [Concomitant]
  5. SULFAMETHOXAZOLE\TRIMETHOPRIM [Concomitant]
     Active Substance: SULFAMETHOXAZOLE\TRIMETHOPRIM
  6. ELIQUIS [Concomitant]
     Active Substance: APIXABAN
  7. L-THYROXIN BETA [Concomitant]
  8. FOLIC ACID [Concomitant]
     Active Substance: FOLIC ACID
  9. ISOMOL [ISOPROPYL MYRISTATE;PARAFFIN, LIQUID] [Concomitant]
  10. PANTOPRAZOLE SODIUM [Concomitant]
     Active Substance: PANTOPRAZOLE SODIUM
  11. CHOLECALCIFEROL [Concomitant]
     Active Substance: CHOLECALCIFEROL

REACTIONS (1)
  - Cytokine release syndrome [Fatal]

NARRATIVE: CASE EVENT DATE: 20211010
